FAERS Safety Report 10119111 (Version 4)
Quarter: 2014Q2

REPORT INFORMATION
  Report Type: Spontaneous
  Country: GR (occurrence: GR)
  Receive Date: 20140425
  Receipt Date: 20140625
  Transmission Date: 20141212
  Serious: Yes (Hospitalization, Other)
  Sender: FDA-Public Use
  Company Number: PHHY2014GR050103

PATIENT
  Age: 45 Year
  Sex: Male

DRUGS (2)
  1. GLIVEC [Suspect]
     Indication: CHRONIC MYELOID LEUKAEMIA
     Dosage: 800 MG, UNK
  2. TASIGNA [Suspect]
     Dosage: UNK UKN, UNK

REACTIONS (6)
  - Bone marrow necrosis [Recovered/Resolved]
  - Pyrexia [Recovered/Resolved]
  - Thrombocytopenia [Recovered/Resolved]
  - Chronic myeloid leukaemia [Recovered/Resolved]
  - Leukaemia recurrent [Recovered/Resolved]
  - Anaemia [Recovered/Resolved]
